FAERS Safety Report 8118836-2 (Version None)
Quarter: 2012Q1

REPORT INFORMATION
  Report Type: 
  Country: None (occurrence: None)
  Receive Date: 20120207
  Receipt Date: 20120126
  Transmission Date: 20120608
  Serious: Yes (Other)
  Sender: FDA-Public Use
  Company Number: DK-JNJFOC-20120112792

PATIENT
  Sex: Female

DRUGS (2)
  1. METHOTREXATE [Concomitant]
     Indication: PRODUCT USED FOR UNKNOWN INDICATION
     Dates: start: 20080219, end: 20100810
  2. REMICADE [Suspect]
     Indication: RHEUMATOID ARTHRITIS
     Dosage: 230 MG WEEK 0, 2, 6, +8. LAST PREVIOUS DATE OF TREATMENT WAS 10-AUG-2010.
     Route: 042
     Dates: start: 20070920

REACTIONS (1)
  - BASAL CELL CARCINOMA [None]
